FAERS Safety Report 9190707 (Version 1)
Quarter: 2013Q1

REPORT INFORMATION
  Report Type: Spontaneous
  Country: CN (occurrence: None)
  Receive Date: 20130322
  Receipt Date: 20130322
  Transmission Date: 20140127
  Serious: Yes (Hospitalization)
  Sender: FDA-Public Use
  Company Number: SYM-2013-01687

PATIENT
  Age: 59 Year
  Sex: Male

DRUGS (3)
  1. 5-FU [Suspect]
     Dosage: INTRAVENOUS  (NOT  OTHERWISE  SPECIFIED)
     Route: 042
     Dates: start: 20120511, end: 20120605
  2. CISPLATIN [Suspect]
     Dosage: INTRAVENOUS  (NOT  OTHERWISE  SPECIFIED)
     Route: 042
     Dates: start: 20120511, end: 20120601
  3. DOCETAXEL [Suspect]

REACTIONS (1)
  - Neutrophil count decreased [None]
